FAERS Safety Report 19790606 (Version 1)
Quarter: 2021Q3

REPORT INFORMATION
  Report Type: Spontaneous
  Country: CA (occurrence: CA)
  Receive Date: 20210906
  Receipt Date: 20210906
  Transmission Date: 20211014
  Serious: Yes (Other)
  Sender: FDA-Public Use
  Company Number: CA-ROCHE-2902440

PATIENT
  Age: 47 Year
  Sex: Female

DRUGS (15)
  1. LUPRON [Concomitant]
     Active Substance: LEUPROLIDE ACETATE
     Dosage: LIQUID SUBCUTANEOUS
  2. TRANEXAMIC ACID. [Concomitant]
     Active Substance: TRANEXAMIC ACID
  3. WARFARIN [Concomitant]
     Active Substance: WARFARIN
  4. TADALAFIL. [Concomitant]
     Active Substance: TADALAFIL
  5. MACITENTAN [Concomitant]
     Active Substance: MACITENTAN
  6. SEPTRA [Concomitant]
     Active Substance: SULFAMETHOXAZOLE\TRIMETHOPRIM
  7. MYCOPHENOLATE MOFETIL. [Suspect]
     Active Substance: MYCOPHENOLATE MOFETIL
     Indication: PRODUCT USED FOR UNKNOWN INDICATION
     Route: 065
  8. FUROSEMIDE. [Concomitant]
     Active Substance: FUROSEMIDE
  9. SACCHARATED IRON OXIDE [Concomitant]
     Active Substance: IRON SUCROSE
  10. TRAMACET [Concomitant]
     Active Substance: ACETAMINOPHEN\TRAMADOL
  11. RITUXIMAB. [Suspect]
     Active Substance: RITUXIMAB
     Indication: MYOSITIS
     Route: 042
  12. BISOPROLOL [Concomitant]
     Active Substance: BISOPROLOL
  13. DESVENLAFAXINE SUCCINATE. [Concomitant]
     Active Substance: DESVENLAFAXINE SUCCINATE
  14. PANTOPRAZOLE [Concomitant]
     Active Substance: PANTOPRAZOLE
  15. PREDNISONE. [Concomitant]
     Active Substance: PREDNISONE

REACTIONS (4)
  - Pulmonary embolism [Recovered/Resolved]
  - Uterine haemorrhage [Recovered/Resolved]
  - Haemoglobin decreased [Recovered/Resolved]
  - Off label use [Unknown]
